FAERS Safety Report 4672802-8 (Version None)
Quarter: 2005Q2

REPORT INFORMATION
  Report Type: 
  Country: None (occurrence: None)
  Receive Date: 20050523
  Receipt Date: 20050504
  Transmission Date: 20051028
  Serious: No
  Sender: FDA-Public Use
  Company Number: PHBS2005BE06441

PATIENT
  Sex: Male

DRUGS (1)
  1. LIORESAL [Suspect]
     Indication: QUADRIPLEGIA
     Dosage: 1 MG/KG/DAY, INTRATHECAL
     Route: 037
     Dates: start: 19950101

REACTIONS (1)
  - CHOLESTASIS [None]
